FAERS Safety Report 5342586-9 (Version None)
Quarter: 2007Q2

REPORT INFORMATION
  Report Type: 
  Country: None (occurrence: None)
  Receive Date: 20070601
  Receipt Date: 20070427
  Transmission Date: 20071010
  Serious: No
  Sender: FDA-Public Use
  Company Number: A0645815A

PATIENT
  Age: 1 Year
  Sex: Female
  Weight: 9.3 kg

DRUGS (2)
  1. AMOXICILLIN + CLAVULANATE POTASSIUM [Suspect]
     Indication: EAR INFECTION
     Dosage: 4CC TWICE PER DAY
     Route: 048
     Dates: start: 20070324, end: 20070325
  2. POLY-VI-FLOR [Concomitant]
     Dates: start: 20070301

REACTIONS (4)
  - ASTHENIA [None]
  - GAIT DISTURBANCE [None]
  - PHARMACEUTICAL PRODUCT COMPLAINT [None]
  - SOMNOLENCE [None]
